FAERS Safety Report 6874200-5 (Version None)
Quarter: 2010Q3

REPORT INFORMATION
  Report Type: 
  Country: None (occurrence: None)
  Receive Date: 20100723
  Receipt Date: 20090603
  Transmission Date: 20110219
  Serious: No
  Sender: FDA-Public Use
  Company Number: US-PFIZER INC-2009197297

PATIENT
  Sex: Female
  Weight: 74.842 kg

DRUGS (6)
  1. CHANTIX [Suspect]
     Indication: SMOKING CESSATION THERAPY
     Dosage: UNK
     Dates: start: 20090406
  2. BACLOFEN [Concomitant]
  3. LISINOPRIL [Concomitant]
     Indication: HYPERTENSION
  4. ESTRADIOL [Concomitant]
  5. SYMBICORT [Concomitant]
     Indication: BLOOD CHOLESTEROL INCREASED
  6. OMEGA-3 MARINE TRIGLYCERIDES [Concomitant]
     Indication: BLOOD CHOLESTEROL INCREASED

REACTIONS (3)
  - CONSTIPATION [None]
  - DYSGEUSIA [None]
  - NAUSEA [None]
